FAERS Safety Report 8451334-5 (Version None)
Quarter: 2012Q2

REPORT INFORMATION
  Report Type: 
  Country: None (occurrence: None)
  Receive Date: 20120620
  Receipt Date: 20120223
  Transmission Date: 20120825
  Serious: No
  Sender: FDA-Public Use
  Company Number: US-VERTEX PHARMACEUTICALS INC.-AE-2012-002714

PATIENT
  Sex: Female
  Weight: 64.468 kg

DRUGS (3)
  1. INCIVEK [Suspect]
     Indication: HEPATITIS C
     Route: 048
     Dates: start: 20120120
  2. PEGASYS [Concomitant]
     Indication: HEPATITIS C
     Dates: start: 20120120
  3. RIBAVIRIN [Concomitant]
     Indication: HEPATITIS C
     Dates: start: 20120120

REACTIONS (2)
  - NAUSEA [None]
  - UPPER-AIRWAY COUGH SYNDROME [None]
